FAERS Safety Report 17770366 (Version 2)
Quarter: 2020Q4

REPORT INFORMATION
  Report Type: Spontaneous
  Country: US (occurrence: US)
  Receive Date: 20200512
  Receipt Date: 20201215
  Transmission Date: 20210113
  Serious: Yes (Other)
  Sender: FDA-Public Use
  Company Number: US-GILEAD-2020-0466194

PATIENT
  Sex: Female

DRUGS (2)
  1. TRUVADA [Suspect]
     Active Substance: EMTRICITABINE\TENOFOVIR DISOPROXIL FUMARATE
     Indication: HIV INFECTION
     Dosage: UNK
     Route: 048
     Dates: start: 200507, end: 201410
  2. VIREAD [Suspect]
     Active Substance: TENOFOVIR DISOPROXIL FUMARATE
     Indication: HIV INFECTION
     Dosage: UNK
     Route: 048
     Dates: start: 200507, end: 201410

REACTIONS (7)
  - Skeletal injury [Unknown]
  - Renal injury [Unknown]
  - Osteonecrosis [Unknown]
  - Osteoporosis [Not Recovered/Not Resolved]
  - Bone density decreased [Unknown]
  - Multiple fractures [Not Recovered/Not Resolved]
  - Bone loss [Unknown]

NARRATIVE: CASE EVENT DATE: 2014
